FAERS Safety Report 20484366 (Version 7)
Quarter: 2022Q3

REPORT INFORMATION
  Report Type: Report from Study
  Country: US (occurrence: US)
  Receive Date: 20220217
  Receipt Date: 20220926
  Transmission Date: 20221026
  Serious: Yes (Life-Threatening, Hospitalization, Disabling, Other)
  Sender: FDA-Public Use
  Company Number: US-JNJFOC-20220214179

PATIENT
  Age: 52 Year
  Sex: Male
  Weight: 90.800 kg

DRUGS (21)
  1. APALUTAMIDE [Suspect]
     Active Substance: APALUTAMIDE
     Indication: Prostate cancer
     Dosage: LAST DOSE 28-01-2022
     Route: 048
     Dates: start: 20211220, end: 20220128
  2. RELUGOLIX [Concomitant]
     Active Substance: RELUGOLIX
     Indication: Prostate cancer
     Dosage: LOADING DOSE
     Dates: start: 20211206
  3. RELUGOLIX [Concomitant]
     Active Substance: RELUGOLIX
     Dates: start: 20211207, end: 20220128
  4. ADDERALL [Concomitant]
     Active Substance: AMPHETAMINE ASPARTATE\AMPHETAMINE SULFATE\DEXTROAMPHETAMINE SACCHARATE\DEXTROAMPHETAMINE SULFATE
     Route: 048
     Dates: start: 2009, end: 202202
  5. ADDERALL [Concomitant]
     Active Substance: AMPHETAMINE ASPARTATE\AMPHETAMINE SULFATE\DEXTROAMPHETAMINE SACCHARATE\DEXTROAMPHETAMINE SULFATE
     Route: 048
     Dates: start: 20220308
  6. VITAMINS [Concomitant]
     Active Substance: VITAMINS
     Route: 048
     Dates: start: 2001
  7. PREVAGEN [APOAEQUORIN] [Concomitant]
     Route: 048
     Dates: start: 2017, end: 202202
  8. METFORMIN [Concomitant]
     Active Substance: METFORMIN HYDROCHLORIDE
     Route: 048
     Dates: start: 2007, end: 20220202
  9. METFORMIN [Concomitant]
     Active Substance: METFORMIN HYDROCHLORIDE
     Route: 048
     Dates: start: 20220228
  10. TRULICITY [Concomitant]
     Active Substance: DULAGLUTIDE
     Dates: start: 2007, end: 202202
  11. PIOGLITAZONE [Concomitant]
     Active Substance: PIOGLITAZONE
     Dates: start: 2007, end: 202202
  12. SILDENAFIL [Concomitant]
     Active Substance: SILDENAFIL
     Route: 048
     Dates: start: 202110, end: 202202
  13. DIPHENHYDRAMINE HYDROCHLORIDE [Concomitant]
     Active Substance: DIPHENHYDRAMINE HYDROCHLORIDE
     Indication: Rash maculo-papular
     Dates: start: 20211230, end: 20220118
  14. DIPHENHYDRAMINE HYDROCHLORIDE [Concomitant]
     Active Substance: DIPHENHYDRAMINE HYDROCHLORIDE
     Indication: Rash
  15. HYDROCORTISONE ACETATE [Concomitant]
     Active Substance: HYDROCORTISONE ACETATE
     Indication: Rash maculo-papular
     Dates: start: 20220101, end: 20220118
  16. HYDROCORTISONE ACETATE [Concomitant]
     Active Substance: HYDROCORTISONE ACETATE
     Indication: Rash
  17. ATORVASTATIN [Concomitant]
     Active Substance: ATORVASTATIN
     Dates: start: 201612, end: 202202
  18. INSULIN LISPRO [Concomitant]
     Active Substance: INSULIN LISPRO
     Dosage: 1-11 UNITS TID AC; 2-7 UNITS NIGHTLY
     Dates: start: 20220204
  19. IOHEXOL [Concomitant]
     Active Substance: IOHEXOL
     Indication: Scan with contrast
     Dates: start: 20220201, end: 20220201
  20. SODIUM CHLORIDE [Concomitant]
     Active Substance: SODIUM CHLORIDE
     Route: 065
     Dates: start: 20220131, end: 20220131
  21. SODIUM CHLORIDE [Concomitant]
     Active Substance: SODIUM CHLORIDE
     Route: 065
     Dates: start: 20220208, end: 202202

REACTIONS (2)
  - Stevens-Johnson syndrome [Not Recovered/Not Resolved]
  - Hypertransaminasaemia [Unknown]

NARRATIVE: CASE EVENT DATE: 20220202
